FAERS Safety Report 21094474 (Version 1)
Quarter: 2022Q3

REPORT INFORMATION
  Report Type: Spontaneous
  Country: US (occurrence: None)
  Receive Date: 20220716
  Receipt Date: 20220716
  Transmission Date: 20221027
  Serious: Yes (Hospitalization)
  Sender: FDA-Public Use
  Company Number: None

PATIENT
  Age: 71 Year
  Sex: Male
  Weight: 104.2 kg

DRUGS (1)
  1. CYTARABINE [Suspect]
     Active Substance: CYTARABINE

REACTIONS (6)
  - Febrile neutropenia [None]
  - Thrombocytopenia [None]
  - Antimicrobial susceptibility test resistant [None]
  - Escherichia infection [None]
  - Acute kidney injury [None]
  - Hydronephrosis [None]

NARRATIVE: CASE EVENT DATE: 20220616
